FAERS Safety Report 9704690 (Version 2)
Quarter: 2013Q4

REPORT INFORMATION
  Report Type: Spontaneous
  Country: GB (occurrence: GB)
  Receive Date: 20131122
  Receipt Date: 20131122
  Transmission Date: 20140711
  Serious: Yes (Other)
  Sender: FDA-Public Use
  Company Number: GB-JNJFOC-20131013432

PATIENT
  Age: 6 Decade
  Sex: Male

DRUGS (5)
  1. PREZISTA [Suspect]
     Indication: HIV TEST POSITIVE
     Route: 048
     Dates: start: 20130410
  2. RITONAVIR [Suspect]
     Indication: HIV TEST POSITIVE
     Route: 065
  3. AMLODIPINE [Concomitant]
     Indication: BLOOD PRESSURE INCREASED
     Route: 065
  4. RAMIPRIL [Concomitant]
     Indication: BLOOD PRESSURE INCREASED
     Route: 065
  5. ALLOPURINOL [Concomitant]
     Indication: BLOOD URIC ACID INCREASED
     Route: 065

REACTIONS (1)
  - Oedema peripheral [Recovered/Resolved]
